FAERS Safety Report 25998774 (Version 1)
Quarter: 2025Q4

REPORT INFORMATION
  Report Type: Spontaneous
  Country: CN (occurrence: CN)
  Receive Date: 20251105
  Receipt Date: 20251105
  Transmission Date: 20260117
  Serious: Yes (Hospitalization)
  Sender: ACCORD
  Company Number: None

PATIENT
  Age: 44 Year
  Sex: Female
  Weight: 58 kg

DRUGS (3)
  1. TRASTUZUMAB [Suspect]
     Active Substance: TRASTUZUMAB
     Indication: Neoplasm malignant
     Dosage: 350 MILLIGRAM, QD, IV DRIP, STRENGTH: 150 MG
     Route: 042
     Dates: start: 20250829, end: 20250829
  2. CARBOPLATIN [Suspect]
     Active Substance: CARBOPLATIN
     Indication: Neoplasm malignant
     Dosage: 500 MILLIGRAM, QD, IV DRIP
     Route: 042
     Dates: start: 20250828, end: 20250828
  3. PACLITAXEL [Suspect]
     Active Substance: PACLITAXEL
     Indication: Neoplasm malignant
     Dosage: 400 MILLIGRAM, QD, IV DRIP
     Route: 042
     Dates: start: 20250828, end: 20250828

REACTIONS (2)
  - Myelosuppression [Unknown]
  - Expired product administered [Unknown]

NARRATIVE: CASE EVENT DATE: 20250920
